FAERS Safety Report 9073486 (Version 1)
Quarter: 2013Q1

REPORT INFORMATION
  Report Type: Spontaneous
  Country: US (occurrence: US)
  Receive Date: 20130129
  Receipt Date: 20130129
  Transmission Date: 20140127
  Serious: No
  Sender: FDA-Public Use
  Company Number: US-ABBOTT-12P-163-0918486-00

PATIENT
  Sex: 0

DRUGS (1)
  1. HUMIRA 40 MG/ 0.8 ML PRE-FILLED SYRINGE [Suspect]
     Indication: PRODUCT USED FOR UNKNOWN INDICATION
     Dates: start: 2006

REACTIONS (11)
  - Palpitations [Unknown]
  - Condition aggravated [Unknown]
  - Anxiety [Unknown]
  - Headache [Unknown]
  - Sinusitis [Unknown]
  - Increased tendency to bruise [Unknown]
  - Agitation [Unknown]
  - Fatigue [Unknown]
  - Restlessness [Unknown]
  - Nasal congestion [Unknown]
  - Stress [Unknown]
